FAERS Safety Report 4348822-X (Version None)
Quarter: 2004Q2

REPORT INFORMATION
  Report Type: 
  Country: None (occurrence: None)
  Receive Date: 20040423
  Receipt Date: 20040408
  Transmission Date: 20050107
  Serious: Yes (Death)
  Sender: FDA-Public Use
  Company Number: 2004-0006898

PATIENT
  Age: 57 Year
  Sex: Male

DRUGS (4)
  1. HEPSERA [Suspect]
     Indication: CONDITION AGGRAVATED
     Dosage: ORAL
     Route: 048
     Dates: start: 20040206, end: 20040215
  2. HEPSERA [Suspect]
     Indication: HEPATITIS B
     Dosage: ORAL
     Route: 048
     Dates: start: 20040206, end: 20040215
  3. LAMIVUDINE (LAMIVUDINE) [Concomitant]
  4. PRAVASTATIN [Concomitant]

REACTIONS (1)
  - HEPATIC FAILURE [None]
